FAERS Safety Report 8093232-5 (Version None)
Quarter: 2012Q1

REPORT INFORMATION
  Report Type: 
  Country: None (occurrence: None)
  Receive Date: 20120128
  Receipt Date: 20111026
  Transmission Date: 20120608
  Serious: No
  Sender: FDA-Public Use
  Company Number: US-ABBOTT-11P-163-0721269-00

PATIENT
  Age: 52 Year
  Sex: Male

DRUGS (3)
  1. HUMIRA [Suspect]
     Indication: PSORIASIS
     Dates: start: 20110201
  2. HUMIRA [Suspect]
     Indication: PSORIATIC ARTHROPATHY
  3. HCTZ/DYAZIDE [Concomitant]
     Indication: HYPERTENSION
     Dosage: 25/320 DAILY
     Route: 048

REACTIONS (4)
  - PSORIASIS [None]
  - BLOOD PRESSURE INCREASED [None]
  - PAIN [None]
  - PAIN IN EXTREMITY [None]
